FAERS Safety Report 21419305 (Version 1)
Quarter: 2022Q4

REPORT INFORMATION
  Report Type: Spontaneous
  Country: GB (occurrence: GB)
  Receive Date: 20221006
  Receipt Date: 20221006
  Transmission Date: 20230113
  Serious: Yes (Other)
  Sender: FDA-Public Use
  Company Number: None

PATIENT
  Age: 75 Year
  Sex: Female
  Weight: 97 kg

DRUGS (33)
  1. DOXYCYCLINE [Suspect]
     Active Substance: DOXYCYCLINE
     Indication: Product used for unknown indication
     Dosage: 100 MILLIGRAM TWO NOW THEN ONE DAILY
     Route: 065
     Dates: start: 20220629
  2. AMOXICILLIN [Concomitant]
     Active Substance: AMOXICILLIN
     Dosage: 1 DOSAGE FORM, TID
     Route: 065
     Dates: start: 20220912, end: 20220919
  3. ASPIRIN [Concomitant]
     Active Substance: ASPIRIN
     Dosage: 1 DOSAGE FORM, QD EVERY MORNING
     Route: 065
     Dates: start: 20220119
  4. CANDESARTAN [Concomitant]
     Active Substance: CANDESARTAN
     Dosage: 1 DOSAGE FORM, QD
     Route: 065
     Dates: start: 20220607
  5. CAPSAICIN [Concomitant]
     Active Substance: CAPSAICIN
     Dosage: APPLY 3-4 TIMES/DAY
     Route: 065
     Dates: start: 20220714, end: 20220724
  6. CHLORPHENIRAMINE MALEATE [Concomitant]
     Active Substance: CHLORPHENIRAMINE MALEATE
     Dosage: 1 DOSAGE FORM EVERY 4-6 HOURS
     Route: 065
     Dates: start: 20220708, end: 20220718
  7. CLOPIDOGREL [Concomitant]
     Active Substance: CLOPIDOGREL BISULFATE
     Dosage: 1 DOSAGE FORM, QD
     Route: 065
     Dates: start: 20220329
  8. COCODAMOL [Concomitant]
     Active Substance: ACETAMINOPHEN\CODEINE PHOSPHATE
     Dosage: UNK UNK, QID 1-2 TABLETS
     Route: 065
     Dates: start: 20220907
  9. DAPAGLIFLOZIN [Concomitant]
     Active Substance: DAPAGLIFLOZIN
     Dosage: 1 DOSAGE FORM, QD
     Route: 065
     Dates: start: 20220329
  10. DICLOFENAC DIETHYLAMINE [Concomitant]
     Active Substance: DICLOFENAC DIETHYLAMINE
     Dosage: UNK UNK, BID APPLY
     Route: 065
     Dates: start: 20220921
  11. DOXAZOSIN [Concomitant]
     Active Substance: DOXAZOSIN MESYLATE
     Dosage: 16 MILLIGRAM, QD
     Route: 065
     Dates: start: 20170704
  12. DULOXETINE [Concomitant]
     Active Substance: DULOXETINE
     Dosage: 1 DOSAGE FORM, QD AT NIGHT
     Route: 065
     Dates: start: 20220506, end: 20220714
  13. FEXOFENADINE [Concomitant]
     Active Substance: FEXOFENADINE HYDROCHLORIDE
     Dosage: 1 DOSAGE FORM, QD
     Route: 065
     Dates: start: 20220721, end: 20220820
  14. FLUCLOXACILLIN [Concomitant]
     Active Substance: FLUCLOXACILLIN
     Dosage: 1 DOSAGE FORM, QID
     Route: 065
     Dates: start: 20220708, end: 20220713
  15. BECLOMETHASONE\FORMOTEROL [Concomitant]
     Active Substance: BECLOMETHASONE\FORMOTEROL
     Dosage: 2 DOSAGE FORM, BID
     Route: 055
     Dates: start: 20220607
  16. FUROSEMIDE [Concomitant]
     Active Substance: FUROSEMIDE
     Dosage: 1 DOSAGE FORM, BID
     Route: 065
     Dates: start: 20190401
  17. NITROGLYCERIN [Concomitant]
     Active Substance: NITROGLYCERIN
     Dosage: 1 DOSAGE FORM, PRN PUFF
     Route: 065
     Dates: start: 20220119
  18. HUMULIN L [Concomitant]
     Active Substance: INSULIN HUMAN
     Dosage: 37 UNITS IN THE MORNING; 8 UNITS AT NIGHT (SEPT
     Route: 065
     Dates: start: 20210329
  19. IBUPROFEN [Concomitant]
     Active Substance: IBUPROFEN
     Dosage: UNK UNK, TID APPLY
     Route: 065
     Dates: start: 20220831
  20. ISOSORBIDE MONONITRATE [Concomitant]
     Active Substance: ISOSORBIDE MONONITRATE
     Dosage: 30 MILLIGRAM, QD EACH MORNING
     Route: 065
     Dates: start: 20220119
  21. IVABRADINE [Concomitant]
     Active Substance: IVABRADINE
     Dosage: 1 DOSAGE FORM, BID
     Route: 065
     Dates: start: 20170110
  22. LANSOPRAZOLE [Concomitant]
     Active Substance: LANSOPRAZOLE
     Dosage: 1 DOSAGE FORM, QD
     Route: 065
     Dates: start: 20200908
  23. MOMETASONE [Concomitant]
     Active Substance: MOMETASONE
     Dosage: UNK UNK, QD APPLY
     Route: 065
     Dates: start: 20220708, end: 20220805
  24. MONTELUKAST [Concomitant]
     Active Substance: MONTELUKAST SODIUM
     Dosage: 1 DOSAGE FORM, QD AT NIGHT
     Route: 065
     Dates: start: 20220329
  25. MOVICOL [Concomitant]
     Active Substance: POLYETHYLENE GLYCOL 3350\POTASSIUM CHLORIDE\SODIUM BICARBONATE\SODIUM CHLORIDE
     Indication: Constipation
     Dosage: 1 DOSAGE FORM, BID SACHET
     Route: 065
     Dates: start: 20220119
  26. CHLORHEXIDINE HYDROCHLORIDE\NEOMYCIN SULFATE [Concomitant]
     Active Substance: CHLORHEXIDINE HYDROCHLORIDE\NEOMYCIN SULFATE
     Dosage: UNK UNK, QID APPLY FOR 10 DAYS
     Route: 065
     Dates: start: 20220726, end: 20220805
  27. CARBOXYMETHYLCELLULOSE SODIUM\GLYCERIN [Concomitant]
     Active Substance: CARBOXYMETHYLCELLULOSE SODIUM\GLYCERIN
     Dosage: 1 GTT DROPS, PRN TWICE A DAY
     Route: 065
     Dates: start: 20211125
  28. ACETAMINOPHEN [Concomitant]
     Active Substance: ACETAMINOPHEN
     Dosage: 2 DOSAGE FORM, PRN UP TO FOUR TIMES DAILY
     Route: 065
     Dates: start: 20210412
  29. PREDNISOLONE [Concomitant]
     Active Substance: PREDNISOLONE
     Dosage: 8 DOSAGE FORM, QD
     Route: 065
     Dates: start: 20220728, end: 20220802
  30. SENNOSIDES [Concomitant]
     Active Substance: SENNOSIDES
     Dosage: 10 MILLILITER, PRN SPOON AT NIGHT
     Route: 065
     Dates: start: 20211105
  31. TOLTERODINE TARTRATE [Concomitant]
     Active Substance: TOLTERODINE TARTRATE
     Dosage: 1 DOSAGE FORM, BID
     Route: 065
     Dates: start: 20211108
  32. VITAMIN D3 [Concomitant]
     Active Substance: CHOLECALCIFEROL
     Dosage: 2 DOSAGE FORM, QD
     Route: 065
     Dates: start: 20220608
  33. VENTOLIN [Concomitant]
     Active Substance: ALBUTEROL SULFATE
     Dosage: 2 DOSAGE FORM, PRN
     Route: 055
     Dates: start: 20220412

REACTIONS (2)
  - Drug eruption [Unknown]
  - Vasculitic rash [Unknown]

NARRATIVE: CASE EVENT DATE: 20220922
